FAERS Safety Report 17571522 (Version 1)
Quarter: 2020Q1

REPORT INFORMATION
  Report Type: Spontaneous
  Country: US (occurrence: US)
  Receive Date: 20200316
  Receipt Date: 20200316
  Transmission Date: 20200409
  Serious: Yes (Hospitalization)
  Sender: FDA-Public Use
  Company Number: None

PATIENT
  Age: 86 Year
  Sex: Female
  Weight: 77.11 kg

DRUGS (6)
  1. PROLIA [Suspect]
     Active Substance: DENOSUMAB
     Indication: BONE DISORDER
     Dosage: ?          QUANTITY:1 DF DOSAGE FORM;OTHER FREQUENCY:6 MONTHS;?
     Route: 058
     Dates: start: 201312, end: 201912
  2. COZAAR [Concomitant]
     Active Substance: LOSARTAN POTASSIUM
  3. SYNTHROID [Concomitant]
     Active Substance: LEVOTHYROXINE SODIUM
  4. 81 MG ASPIRIN [Concomitant]
     Active Substance: ASPIRIN
  5. METOPROLOL TARTRATE. [Concomitant]
     Active Substance: METOPROLOL TARTRATE
  6. CALCIUM + VIT D [Concomitant]
     Active Substance: CALCIUM\VITAMIN D

REACTIONS (7)
  - Nasopharyngitis [None]
  - Neck pain [None]
  - Abdominal infection [None]
  - Vomiting [None]
  - Malaise [None]
  - Asthenia [None]
  - Headache [None]

NARRATIVE: CASE EVENT DATE: 20200114
